FAERS Safety Report 4763692-3 (Version None)
Quarter: 2005Q3

REPORT INFORMATION
  Report Type: 
  Country: None (occurrence: None)
  Receive Date: 20050908
  Receipt Date: 20050906
  Transmission Date: 20060218
  Serious: Yes (Death, Hospitalization)
  Sender: FDA-Public Use
  Company Number: DE-GLAXOSMITHKLINE-A0573162A

PATIENT
  Age: 67 Year
  Sex: Male

DRUGS (4)
  1. NAVELBINE [Suspect]
     Indication: NON-SMALL CELL LUNG CANCER
     Route: 042
     Dates: start: 20050429, end: 20050506
  2. CISPLATIN [Suspect]
     Indication: NON-SMALL CELL LUNG CANCER
     Dates: start: 20050216, end: 20050506
  3. PACLITAXEL [Suspect]
     Indication: NON-SMALL CELL LUNG CANCER
     Dates: start: 20050216, end: 20050329
  4. FENISTIL [Concomitant]

REACTIONS (7)
  - ANXIETY [None]
  - CARDIOVASCULAR DISORDER [None]
  - MULTI-ORGAN FAILURE [None]
  - PNEUMONIA [None]
  - PYOTHORAX [None]
  - RESPIRATORY FAILURE [None]
  - SHOCK [None]
